FAERS Safety Report 8934307 (Version 3)
Quarter: 2014Q1

REPORT INFORMATION
  Report Type: Report from Study
  Country: DE (occurrence: DE)
  Receive Date: 20121129
  Receipt Date: 20140111
  Transmission Date: 20141002
  Serious: Yes (Death, Hospitalization, Other)
  Sender: FDA-Public Use
  Company Number: DE-ROCHE-1160641

PATIENT
  Age: 71 Year
  Sex: Female
  Weight: 64 kg

DRUGS (16)
  1. BEVACIZUMAB [Suspect]
     Indication: BREAST CANCER
     Route: 042
     Dates: start: 20121030, end: 20121030
  2. BEVACIZUMAB [Suspect]
     Route: 042
     Dates: start: 20120524, end: 20120524
  3. BEVACIZUMAB [Suspect]
     Route: 042
     Dates: start: 20120706, end: 20120706
  4. ENALAPRIL [Suspect]
     Indication: HYPERTENSION
     Route: 048
     Dates: start: 2010, end: 20121117
  5. ARCOXIA [Suspect]
     Indication: PAIN
     Route: 048
  6. TAVOR EXPIDET [Suspect]
     Indication: ANXIETY
     Route: 048
  7. REKAWAN [Suspect]
     Indication: PRODUCT USED FOR UNKNOWN INDICATION
     Route: 048
  8. HYDROMORPHONE [Suspect]
     Indication: PRODUCT USED FOR UNKNOWN INDICATION
     Route: 048
  9. PREDNISOLON [Suspect]
     Indication: PRODUCT USED FOR UNKNOWN INDICATION
     Route: 048
  10. VITAMIN B COMPLEX [Suspect]
     Indication: PRODUCT USED FOR UNKNOWN INDICATION
     Route: 048
  11. PERENTEROL [Suspect]
     Indication: DIARRHOEA
     Dosage: 2
     Route: 048
     Dates: start: 20121108
  12. FERROSANOL DUODENAL [Suspect]
     Indication: ANAEMIA
     Route: 048
     Dates: start: 20121108
  13. METOCLOPRAMID [Suspect]
     Indication: SUBILEUS
     Route: 048
     Dates: start: 20121112, end: 20121117
  14. PACLITAXEL [Suspect]
     Indication: BREAST CANCER
     Dosage: THE PATIENT RECEIVED SAME DOSE ON 30/MAY/2012, 06/JUN/2012, 20/JUN/2012, 27/JUN/2012, 06/JUL/2012, 1
     Route: 042
     Dates: start: 20120524
  15. PANTOZOL (GERMANY) [Suspect]
     Indication: PROPHYLAXIS AGAINST GASTROINTESTINAL ULCER
     Route: 048
  16. BISACODYL [Concomitant]
     Indication: CONSTIPATION
     Route: 065
     Dates: start: 20120605, end: 20120606

REACTIONS (6)
  - Femur fracture [Recovered/Resolved]
  - Metastases to bone [Unknown]
  - Diarrhoea [Not Recovered/Not Resolved]
  - Intestinal perforation [Fatal]
  - Cardiac arrest [Fatal]
  - Subileus [Fatal]
